FAERS Safety Report 7909236-6 (Version None)
Quarter: 2011Q4

REPORT INFORMATION
  Report Type: 
  Country: None (occurrence: None)
  Receive Date: 20111111
  Receipt Date: 20111103
  Transmission Date: 20120403
  Serious: Yes (Hospitalization)
  Sender: FDA-Public Use
  Company Number: US-ASTELLAS-2011US007371

PATIENT
  Sex: Male

DRUGS (1)
  1. VESICARE [Suspect]
     Indication: PRODUCT USED FOR UNKNOWN INDICATION
     Dosage: 5 MG, UNKNOWN/D
     Route: 048
     Dates: start: 20081226, end: 20110908

REACTIONS (4)
  - DRUG INEFFECTIVE [None]
  - NEPHROLITHIASIS [None]
  - ROAD TRAFFIC ACCIDENT [None]
  - RENAL DISORDER [None]
